FAERS Safety Report 18981576 (Version 1)
Quarter: 2021Q1

REPORT INFORMATION
  Report Type: Spontaneous
  Country: US (occurrence: US)
  Receive Date: 20210308
  Receipt Date: 20210308
  Transmission Date: 20210420
  Serious: No
  Sender: FDA-Public Use
  Company Number: None

PATIENT
  Age: 67 Year
  Sex: Male
  Weight: 101.25 kg

DRUGS (8)
  1. LUPRON [Suspect]
     Active Substance: LEUPROLIDE ACETATE
     Indication: PROSTATE CANCER
     Route: 030
     Dates: start: 20150301, end: 20210107
  2. MAGNESIUM [Concomitant]
     Active Substance: MAGNESIUM
  3. MEVACOR [Concomitant]
     Active Substance: LOVASTATIN
  4. IRON [Concomitant]
     Active Substance: IRON
  5. VITAMINS [Concomitant]
     Active Substance: VITAMINS
  6. ZINC. [Concomitant]
     Active Substance: ZINC
  7. FUROSEMIDE. [Concomitant]
     Active Substance: FUROSEMIDE
  8. CALCIUM [Concomitant]
     Active Substance: CALCIUM

REACTIONS (4)
  - Peripheral swelling [None]
  - Arthralgia [None]
  - Loss of personal independence in daily activities [None]
  - Joint swelling [None]

NARRATIVE: CASE EVENT DATE: 20210301
